FAERS Safety Report 14458779 (Version 3)
Quarter: 2018Q2

REPORT INFORMATION
  Report Type: Spontaneous
  Country: US (occurrence: US)
  Receive Date: 20180130
  Receipt Date: 20180417
  Transmission Date: 20180711
  Serious: No
  Sender: FDA-Public Use
  Company Number: US-BRISTOL-MYERS SQUIBB COMPANY-BMS-2018-006193

PATIENT
  Sex: Male

DRUGS (1)
  1. OPDIVO [Suspect]
     Active Substance: NIVOLUMAB
     Indication: TESTICULAR CHORIOCARCINOMA
     Dosage: UNK
     Route: 042
     Dates: start: 20171229, end: 20180109

REACTIONS (1)
  - Product use in unapproved indication [Unknown]
